FAERS Safety Report 8146991-7 (Version None)
Quarter: 2012Q1

REPORT INFORMATION
  Report Type: 
  Country: None (occurrence: None)
  Receive Date: 20120217
  Receipt Date: 20120208
  Transmission Date: 20120608
  Serious: Yes (Hospitalization)
  Sender: FDA-Public Use
  Company Number: SG-ASTRAZENECA-2012SE08830

PATIENT
  Age: 9 Year
  Sex: Female

DRUGS (1)
  1. ZOLADEX [Suspect]
     Indication: PRECOCIOUS PUBERTY
     Route: 058
     Dates: start: 20100101

REACTIONS (4)
  - WRONG TECHNIQUE IN DRUG USAGE PROCESS [None]
  - INJECTION SITE PAIN [None]
  - HAEMORRHAGE [None]
  - OFF LABEL USE [None]
